FAERS Safety Report 9770185 (Version 4)
Quarter: 2014Q2

REPORT INFORMATION
  Report Type: Report from Study
  Country: IL (occurrence: IL)
  Receive Date: 20131218
  Receipt Date: 20140416
  Transmission Date: 20141212
  Serious: Yes (Hospitalization)
  Sender: FDA-Public Use
  Company Number: IL-ABBVIE-13P-082-1179445-00

PATIENT
  Sex: Male
  Weight: 100 kg

DRUGS (4)
  1. HUMIRA [Suspect]
     Indication: ANKYLOSING SPONDYLITIS
     Route: 058
     Dates: start: 20130813, end: 20131208
  2. OCSAAR [Concomitant]
     Indication: HYPERTENSION
  3. GLUCOPHAGE [Concomitant]
     Indication: BLOOD GLUCOSE INCREASED
  4. ARCOXIA [Concomitant]
     Indication: PAIN

REACTIONS (4)
  - Deafness [Not Recovered/Not Resolved]
  - Tinnitus [Not Recovered/Not Resolved]
  - Ligament pain [Unknown]
  - Pain [Not Recovered/Not Resolved]
